FAERS Safety Report 6124832-7 (Version None)
Quarter: 2009Q1

REPORT INFORMATION
  Report Type: 
  Country: None (occurrence: None)
  Receive Date: 20090319
  Receipt Date: 20090310
  Transmission Date: 20090719
  Serious: Yes (Death, Other)
  Sender: FDA-Public Use
  Company Number: US-PFIZER INC-2003039725

PATIENT
  Age: 44 Year

DRUGS (2)
  1. PHENYTOIN SODIUM AND PHENYTOIN [Suspect]
     Route: 048
  2. ALCOHOL [Suspect]
     Route: 048

REACTIONS (2)
  - COMPLETED SUICIDE [None]
  - DRUG LEVEL INCREASED [None]
